FAERS Safety Report 7805021-4 (Version None)
Quarter: 2011Q4

REPORT INFORMATION
  Report Type: 
  Country: None (occurrence: None)
  Receive Date: 20111010
  Receipt Date: 20110930
  Transmission Date: 20120403
  Serious: Yes (Death)
  Sender: FDA-Public Use
  Company Number: US-GLAXOSMITHKLINE-A0946652A

PATIENT
  Age: 17 Year
  Sex: Male

DRUGS (1)
  1. PROMACTA [Suspect]
     Indication: CENTRAL NERVOUS SYSTEM NEOPLASM
     Dosage: 25MG PER DAY
     Route: 048
     Dates: start: 20110101, end: 20110616

REACTIONS (2)
  - DISEASE PROGRESSION [None]
  - CENTRAL NERVOUS SYSTEM NEOPLASM [None]
